FAERS Safety Report 6214107-X (Version None)
Quarter: 2009Q2

REPORT INFORMATION
  Report Type: 
  Country: None (occurrence: None)
  Receive Date: 20090604
  Receipt Date: 20090602
  Transmission Date: 20091009
  Serious: Yes (Death)
  Sender: FDA-Public Use
  Company Number: ZA-ROCHE-635671

PATIENT

DRUGS (2)
  1. XELODA [Suspect]
     Route: 065
     Dates: start: 20090501, end: 20090501
  2. OXALIPLATIN [Concomitant]
     Dates: start: 20090501, end: 20090501

REACTIONS (1)
  - DRUG TOXICITY [None]
